FAERS Safety Report 6747796-1 (Version None)
Quarter: 2010Q2

REPORT INFORMATION
  Report Type: 
  Country: None (occurrence: None)
  Receive Date: 20100528
  Receipt Date: 20100520
  Transmission Date: 20101027
  Serious: Yes (Other)
  Sender: FDA-Public Use
  Company Number: US-GENENTECH-288846

PATIENT
  Sex: Female
  Weight: 3.175 kg

DRUGS (13)
  1. LUCENTIS [Suspect]
     Indication: MACULAR DEGENERATION
     Dosage: 0.5 MG, Q2M
     Route: 031
     Dates: start: 20090504
  2. LISINOPRIL [Concomitant]
     Indication: BLOOD PRESSURE
  3. LIPITOR [Concomitant]
     Indication: DRUG USE FOR UNKNOWN INDICATION
  4. WARFARIN SODIUM [Concomitant]
     Indication: ATRIAL FIBRILLATION
  5. TYLENOL [Concomitant]
     Indication: DRUG USE FOR UNKNOWN INDICATION
  6. EYE VITAMINS [Concomitant]
     Indication: DRUG USE FOR UNKNOWN INDICATION
  7. LEXAPRO [Concomitant]
     Indication: DEPRESSION
  8. ATENOLOL [Concomitant]
     Indication: CARDIAC DISORDER
  9. ASPIRIN [Concomitant]
     Indication: DRUG USE FOR UNKNOWN INDICATION
     Route: 048
  10. FISH OIL [Concomitant]
     Indication: DRUG USE FOR UNKNOWN INDICATION
  11. CALCIUM 600 + D [Concomitant]
     Indication: DRUG USE FOR UNKNOWN INDICATION
  12. MULTI-VITAMIN [Concomitant]
     Indication: DRUG USE FOR UNKNOWN INDICATION
  13. NEXIUM [Concomitant]
     Indication: DRUG USE FOR UNKNOWN INDICATION

REACTIONS (1)
  - KERATITIS HERPETIC [None]
